FAERS Safety Report 18305259 (Version 6)
Quarter: 2022Q3

REPORT INFORMATION
  Report Type: Spontaneous
  Country: JP (occurrence: JP)
  Receive Date: 20200924
  Receipt Date: 20220714
  Transmission Date: 20221027
  Serious: Yes (Hospitalization, Other)
  Sender: FDA-Public Use
  Company Number: JP-GLAXOSMITHKLINE-JP2020JPN187409

PATIENT

DRUGS (11)
  1. VALTREX [Suspect]
     Active Substance: VALACYCLOVIR HYDROCHLORIDE
     Indication: Herpes zoster
     Dosage: 500 MG, TID, NOON, EVENING, AND MORNING
     Route: 048
     Dates: start: 20200917, end: 20200918
  2. LOSARTAN K TABLETS [Concomitant]
     Indication: Hypertension
     Dosage: 0.5 DF, QD, AFTER BREAKFAST
     Dates: start: 202009, end: 202010
  3. FURSULTIAMINE [Concomitant]
     Active Substance: FURSULTIAMINE
     Indication: Constipation
     Dosage: 25 MG, QD, AFTER BREAKFAST
     Dates: start: 202009, end: 202010
  4. FUROSEMIDE [Concomitant]
     Active Substance: FUROSEMIDE
     Indication: Hypertension
     Dosage: 10 MG, QD, AFTER BREAKFAST
     Dates: start: 202009, end: 202010
  5. SODIUM BICARBONATE [Concomitant]
     Active Substance: SODIUM BICARBONATE
     Indication: Constipation
     Dosage: 500 MG, BID, AFTER BREAKFAST AND DINNER
     Dates: start: 202009, end: 202010
  6. BIFIDOBACTERIUM LONGUM [Concomitant]
     Active Substance: BIFIDOBACTERIUM LONGUM
     Indication: Constipation
     Dosage: 12 MG, TID, AFTER EVERY MEAL
     Dates: start: 202009, end: 202010
  7. LINZESS TABLETS [Concomitant]
     Indication: Constipation
     Dosage: 0.5 MG, QD, BEFORE DINNER
     Dates: start: 202009, end: 202010
  8. ATORVASTATIN CALCIUM [Concomitant]
     Active Substance: ATORVASTATIN CALCIUM
     Indication: Hypercholesterolaemia
     Dosage: 5 MG, QD, AFTER DINNER
     Dates: start: 202009, end: 202010
  9. FERRIC CITRATE ANHYDROUS [Concomitant]
     Active Substance: FERRIC CITRATE ANHYDROUS
     Indication: Chronic kidney disease
     Dosage: 250 MG, TID, AFTER EVERY MEAL
     Dates: start: 202009, end: 202010
  10. FERRIC CITRATE ANHYDROUS [Concomitant]
     Active Substance: FERRIC CITRATE ANHYDROUS
     Indication: Hyperphosphataemia
  11. PICOSULFATE NA ORAL SOLUTION [Concomitant]
     Indication: Constipation
     Dosage: 30 ML, PRN AT CONSTIPATION
     Dates: start: 202009, end: 202010

REACTIONS (2)
  - Altered state of consciousness [Recovered/Resolved]
  - Prescribed overdose [Unknown]

NARRATIVE: CASE EVENT DATE: 20200917
